FAERS Safety Report 22313616 (Version 2)
Quarter: 2024Q4

REPORT INFORMATION
  Report Type: Report from Study
  Country: US (occurrence: US)
  Receive Date: 20230512
  Receipt Date: 20241030
  Transmission Date: 20250114
  Serious: Yes (Other)
  Sender: TAKEDA
  Company Number: US-TAKEDA-US202024605

PATIENT
  Sex: Female

DRUGS (2)
  1. HUMAN IMMUNOGLOBULIN G [Suspect]
     Active Substance: HUMAN IMMUNOGLOBULIN G
     Indication: Primary immunodeficiency syndrome
     Dosage: 15 GRAM, 1/WEEK
     Route: 058
  2. HUMAN IMMUNOGLOBULIN G [Suspect]
     Active Substance: HUMAN IMMUNOGLOBULIN G
     Indication: Selective IgG subclass deficiency

REACTIONS (9)
  - Sarcoidosis [Unknown]
  - Rotator cuff syndrome [Unknown]
  - Lung disorder [Unknown]
  - Spinal stenosis [Unknown]
  - Bone pain [Unknown]
  - Insurance issue [Unknown]
  - Illness [Recovering/Resolving]
  - Immunisation reaction [Unknown]
  - Weight decreased [Unknown]
